FAERS Safety Report 6542445-X (Version None)
Quarter: 2010Q1

REPORT INFORMATION
  Report Type: 
  Country: None (occurrence: None)
  Receive Date: 20100119
  Receipt Date: 20100113
  Transmission Date: 20100710
  Serious: Yes (Other)
  Sender: FDA-Public Use
  Company Number: CZ-ELI_LILLY_AND_COMPANY-CZ201001002494

PATIENT
  Age: 52 Year
  Sex: Female

DRUGS (8)
  1. HUMALOG [Suspect]
     Indication: DIABETES MELLITUS
     Dosage: 14 IU, EACH MORNING
     Route: 058
     Dates: start: 20091101, end: 20100113
  2. HUMALOG [Suspect]
     Dosage: 10 IU, OTHER
     Route: 058
     Dates: start: 20091101, end: 20100113
  3. HUMALOG [Suspect]
     Dosage: 12 IU, EACH EVENING
     Route: 058
     Dates: start: 20091101, end: 20100113
  4. HUMALOG [Suspect]
     Dosage: 12 IU, EACH MORNING
     Route: 058
     Dates: start: 20100114
  5. HUMALOG [Suspect]
     Dosage: 7 IU, OTHER
     Route: 058
     Dates: start: 20100114
  6. HUMALOG [Suspect]
     Dosage: 10 IU, EACH EVENING
     Route: 058
     Dates: start: 20100114
  7. LANTUS [Concomitant]
     Indication: DIABETES MELLITUS
     Dosage: 12 IU, DAILY (1/D)
     Route: 058
     Dates: start: 20100112
  8. INSULIN [Concomitant]
     Indication: DIABETES MELLITUS

REACTIONS (4)
  - ALTERED STATE OF CONSCIOUSNESS [None]
  - AMNESIA [None]
  - CONFUSIONAL STATE [None]
  - HYPOGLYCAEMIA [None]
